FAERS Safety Report 4496335-7 (Version None)
Quarter: 2004Q4

REPORT INFORMATION
  Report Type: 
  Country: None (occurrence: None)
  Receive Date: 20041109
  Receipt Date: 20041102
  Transmission Date: 20050328
  Serious: Yes (Hospitalization)
  Sender: FDA-Public Use
  Company Number: PHBS2004JP14760

PATIENT
  Age: 60 Year

DRUGS (1)
  1. NEORAL [Suspect]
     Indication: PSORIASIS
     Dosage: 50 MG/DAY
     Route: 048

REACTIONS (1)
  - EOSINOPHIL COUNT INCREASED [None]
